FAERS Safety Report 12296848 (Version 2)
Quarter: 2016Q2

REPORT INFORMATION
  Report Type: Spontaneous
  Country: JP (occurrence: JP)
  Receive Date: 20160422
  Receipt Date: 20160502
  Transmission Date: 20160815
  Serious: Yes (Hospitalization)
  Sender: FDA-Public Use
  Company Number: JP-DSJP-DSJ-2016-113777

PATIENT

DRUGS (10)
  1. LIXIANA TABLETS [Suspect]
     Active Substance: EDOXABAN TOSILATE MONOHYDRATE
     Indication: DEEP VEIN THROMBOSIS
     Dosage: 30 MG, QD
     Route: 048
     Dates: start: 20160405, end: 20160415
  2. MICARDIS [Concomitant]
     Active Substance: TELMISARTAN
     Indication: HYPERTENSION
     Dosage: 40 MG, QD
     Route: 048
  3. FLUMETHORONE [Concomitant]
     Indication: CONJUNCTIVITIS
     Dosage: UNK, TID LEFT EYE
     Route: 047
  4. DICLOD [Concomitant]
     Active Substance: DICLOFENAC SODIUM
     Indication: CATARACT
     Dosage: UNK, TID LEFT EYE
     Route: 047
  5. HYALEIN [Concomitant]
     Active Substance: HYALURONATE SODIUM
     Indication: XEROPHTHALMIA
     Dosage: UNK, TID LEFT EYE
     Route: 047
  6. PREDNISOLONE. [Concomitant]
     Active Substance: PREDNISOLONE
     Indication: STILL^S DISEASE ADULT ONSET
     Dosage: MORNING 4MG EVENING 1MG
     Route: 048
  7. XALATAN [Concomitant]
     Active Substance: LATANOPROST
     Indication: GLAUCOMA
     Dosage: UNK, QD BOTH EYES
     Route: 047
  8. NEXIUM [Concomitant]
     Active Substance: ESOMEPRAZOLE MAGNESIUM
     Indication: PEPTIC ULCER
     Dosage: 20 MG, QD
     Route: 048
  9. RECALBON                           /06391801/ [Concomitant]
     Active Substance: MINODRONIC ACID
     Indication: OSTEOPOROSIS
     Dosage: 50 MG, ONCE EVERY 1 MO
     Route: 048
  10. ALFAROL [Concomitant]
     Active Substance: ALFACALCIDOL
     Indication: OSTEOPOROSIS
     Dosage: 0.5 ?G, QD
     Route: 048
     Dates: end: 20160422

REACTIONS (2)
  - Epistaxis [Recovered/Resolved]
  - Thrombocytopenia [Not Recovered/Not Resolved]

NARRATIVE: CASE EVENT DATE: 20160414
